FAERS Safety Report 26000404 (Version 1)
Quarter: 2025Q4

REPORT INFORMATION
  Report Type: Spontaneous
  Country: US (occurrence: US)
  Receive Date: 20251105
  Receipt Date: 20251105
  Transmission Date: 20260117
  Serious: No
  Sender: ANI
  Company Number: US-ANIPHARMA-2025-US-036575

PATIENT
  Age: 51 Year
  Sex: Female
  Weight: 80.74 kg

DRUGS (6)
  1. AZATHIOPRINE [Concomitant]
     Active Substance: AZATHIOPRINE
  2. CYCLOBENZAPRINE HYDROCHLO [Concomitant]
  3. D2000 ULTRA STRENGTH [Concomitant]
  4. ESTRADIOL MICRONIZED [Concomitant]
  5. OMEPRAZOLE [Concomitant]
     Active Substance: OMEPRAZOLE
  6. CORTICOTROPIN [Suspect]
     Active Substance: CORTICOTROPIN
     Indication: Polymyositis
     Dosage: 80U/ML 2 TIMES A WEEK
     Route: 058
     Dates: start: 20250730

REACTIONS (6)
  - Erythema [Unknown]
  - Feeling hot [Unknown]
  - Ocular hyperaemia [Unknown]
  - Night sweats [Unknown]
  - Insomnia [Unknown]
  - Tremor [Unknown]

NARRATIVE: CASE EVENT DATE: 20250731
